FAERS Safety Report 8819742 (Version 1)
Quarter: 2012Q4

REPORT INFORMATION
  Report Type: 
  Country: US (occurrence: US)
  Receive Date: 20121001
  Receipt Date: 20121001
  Transmission Date: 20130627
  Serious: Yes (Hospitalization)
  Sender: FDA-Public Use
  Company Number: US-MYLANLABS-2012S1019540

PATIENT
  Age: 20 Year
  Sex: Male

DRUGS (13)
  1. ESCITALOPRAM [Suspect]
     Indication: MULTIPLE DRUG OVERDOSE INTENTIONAL
     Dosage: multiple crushed 20mg tablets
     Route: 045
  2. ESCITALOPRAM [Suspect]
     Indication: DEPRESSION
     Dosage: multiple crushed 20mg tablets
     Route: 045
  3. ESCITALOPRAM [Suspect]
     Indication: MULTIPLE DRUG OVERDOSE INTENTIONAL
     Dosage: 20 mg/d
     Route: 065
  4. ESCITALOPRAM [Suspect]
     Indication: DEPRESSION
     Dosage: 20 mg/d
     Route: 065
  5. QUETIAPINE [Suspect]
     Indication: MULTIPLE DRUG OVERDOSE INTENTIONAL
     Dosage: multiple crushed 100mg tablets
     Route: 045
  6. QUETIAPINE [Suspect]
     Indication: DEPRESSION
     Dosage: multiple crushed 100mg tablets
     Route: 045
  7. QUETIAPINE [Suspect]
     Indication: MULTIPLE DRUG OVERDOSE INTENTIONAL
     Route: 065
  8. QUETIAPINE [Suspect]
     Indication: DEPRESSION
     Route: 065
  9. CLONAZEPAM [Suspect]
     Indication: MULTIPLE DRUG OVERDOSE INTENTIONAL
     Dosage: multiple crushed tablets
     Route: 045
  10. CLONAZEPAM [Suspect]
     Indication: DEPRESSION
     Dosage: multiple crushed tablets
     Route: 045
  11. CLONAZEPAM [Suspect]
     Indication: MULTIPLE DRUG OVERDOSE INTENTIONAL
     Route: 065
  12. CLONAZEPAM [Suspect]
     Indication: DEPRESSION
     Route: 065
  13. PERCOCET [Suspect]
     Indication: MULTIPLE DRUG OVERDOSE INTENTIONAL
     Dosage: multiple crushed tablets
     Route: 045

REACTIONS (4)
  - Serotonin syndrome [Recovering/Resolving]
  - Mental status changes [Recovering/Resolving]
  - Intentional overdose [Recovering/Resolving]
  - Incorrect route of drug administration [Recovered/Resolved]
